FAERS Safety Report 15254970 (Version 3)
Quarter: 2019Q1

REPORT INFORMATION
  Report Type: Report from Study
  Country: DE (occurrence: DE)
  Receive Date: 20180808
  Receipt Date: 20190211
  Transmission Date: 20190417
  Serious: Yes (Life-Threatening, Hospitalization)
  Sender: FDA-Public Use
  Company Number: DE-JNJFOC-20170923862

PATIENT
  Age: 8 Decade
  Sex: Female

DRUGS (6)
  1. FOLIC ACID. [Concomitant]
     Active Substance: FOLIC ACID
     Route: 065
  2. SIMPONI [Suspect]
     Active Substance: GOLIMUMAB
     Indication: RHEUMATOID ARTHRITIS
     Route: 058
     Dates: start: 201007, end: 20171111
  3. METHOTREXATE. [Suspect]
     Active Substance: METHOTREXATE
     Indication: RHEUMATOID ARTHRITIS
     Route: 065
     Dates: start: 201007, end: 201711
  4. DEKRISTOL [Concomitant]
     Active Substance: CHOLECALCIFEROL
     Route: 065
  5. PREDNISOLONE. [Concomitant]
     Active Substance: PREDNISOLONE
     Route: 065
  6. CLOMIPRAMIN [Concomitant]
     Active Substance: CLOMIPRAMINE
     Route: 065

REACTIONS (2)
  - Hip arthroplasty [Unknown]
  - Ductal adenocarcinoma of pancreas [Recovered/Resolved]

NARRATIVE: CASE EVENT DATE: 20160621
